FAERS Safety Report 9681074 (Version 1)
Quarter: 2013Q4

REPORT INFORMATION
  Report Type: Spontaneous
  Country: US (occurrence: US)
  Receive Date: 20131111
  Receipt Date: 20131111
  Transmission Date: 20140711
  Serious: Yes (Other)
  Sender: FDA-Public Use
  Company Number: US-SA-2013SA115442

PATIENT
  Age: 0 Day
  Sex: Female
  Weight: 3.51 kg

DRUGS (1)
  1. CEREZYME [Suspect]
     Indication: GAUCHER^S DISEASE
     Route: 064

REACTIONS (1)
  - Brachial plexus injury [Recovered/Resolved]
